FAERS Safety Report 11010938 (Version 1)
Quarter: 2015Q2

REPORT INFORMATION
  Report Type: Spontaneous
  Country: US (occurrence: US)
  Receive Date: 20150410
  Receipt Date: 20150410
  Transmission Date: 20150821
  Serious: No
  Sender: FDA-Public Use
  Company Number: US-TEVA-554065USA

PATIENT
  Age: 2 Year

DRUGS (1)
  1. QVAR [Suspect]
     Active Substance: BECLOMETHASONE DIPROPIONATE
     Route: 055

REACTIONS (4)
  - Drug dose omission [Unknown]
  - Asthma [Unknown]
  - Dyspnoea [Unknown]
  - Device malfunction [Unknown]
